FAERS Safety Report 5924304-6 (Version None)
Quarter: 2008Q4

REPORT INFORMATION
  Report Type: 
  Country: None (occurrence: None)
  Receive Date: 20081020
  Receipt Date: 20081010
  Transmission Date: 20090506
  Serious: Yes (Death)
  Sender: FDA-Public Use
  Company Number: JP-ABBOTT-08P-087-0482578-00

PATIENT
  Age: 80 Year
  Sex: Male

DRUGS (15)
  1. LEUPROLIDE ACETATE [Suspect]
     Indication: PROSTATE CANCER STAGE IV
     Route: 058
     Dates: start: 20071010, end: 20071010
  2. LEUPROLIDE ACETATE [Suspect]
     Dates: start: 20070718, end: 20070718
  3. LEUPROLIDE ACETATE [Suspect]
     Dates: start: 20070423, end: 20070423
  4. LEUPROLIDE ACETATE [Suspect]
     Dates: start: 20070123, end: 20070123
  5. LEUPROLIDE ACETATE [Suspect]
     Dates: start: 20061031, end: 20061031
  6. LEUPROLIDE ACETATE [Suspect]
     Dates: start: 20060808, end: 20060808
  7. LEUPROLIDE ACETATE [Suspect]
     Dates: start: 20060711, end: 20060711
  8. LEUPROLIDE ACETATE [Suspect]
     Dates: start: 20050124, end: 20050124
  9. URAPIDIL [Concomitant]
     Indication: NEUROGENIC BLADDER
     Route: 048
     Dates: end: 20070123
  10. BETHANECHOL CHLORIDE [Concomitant]
     Indication: NEUROGENIC BLADDER
     Route: 048
     Dates: end: 20070123
  11. ETOPOSIDE [Concomitant]
     Indication: PROSTATE CANCER STAGE IV
     Dosage: 80 MG/M2 (80 MG/M2, 1 D)
     Route: 042
     Dates: start: 20070410, end: 20070928
  12. CARBOPLATIN [Concomitant]
     Indication: PROSTATE CANCER STAGE IV
     Route: 042
     Dates: start: 20070410, end: 20070926
  13. DEXAMETHASONE [Concomitant]
     Indication: CANCER PAIN
     Route: 048
     Dates: start: 20071025, end: 20071127
  14. MORPHINE SULFATE INJ [Concomitant]
     Indication: CANCER PAIN
     Route: 048
     Dates: start: 20071113, end: 20071127
  15. MORPHINE HCL ELIXIR [Concomitant]
     Indication: CANCER PAIN
     Route: 058
     Dates: start: 20071127, end: 20071209

REACTIONS (3)
  - LUNG NEOPLASM MALIGNANT [None]
  - RECURRENT CANCER [None]
  - RESPIRATORY FAILURE [None]
